FAERS Safety Report 16928908 (Version 2)
Quarter: 2019Q4

REPORT INFORMATION
  Report Type: Spontaneous
  Country: US (occurrence: US)
  Receive Date: 20191017
  Receipt Date: 20191107
  Transmission Date: 20200122
  Serious: Yes (Hospitalization, Other)
  Sender: FDA-Public Use
  Company Number: US-AUROBINDO-AUR-APL-2019-066815

PATIENT
  Age: 80 Year
  Sex: Male

DRUGS (4)
  1. CARBOPLATIN. [Suspect]
     Active Substance: CARBOPLATIN
     Indication: SKIN CANCER
  2. GEMCITABINE. [Suspect]
     Active Substance: GEMCITABINE
     Indication: SKIN CANCER
  3. GEMCITABINE. [Suspect]
     Active Substance: GEMCITABINE
     Indication: LUNG SQUAMOUS CELL CARCINOMA METASTATIC
     Dosage: UNK 2 CYCLICAL
     Route: 065
  4. CARBOPLATIN. [Suspect]
     Active Substance: CARBOPLATIN
     Indication: LUNG SQUAMOUS CELL CARCINOMA METASTATIC
     Dosage: UNK 2 CYCLICAL
     Route: 065

REACTIONS (6)
  - Pancytopenia [Unknown]
  - Toxicity to various agents [Unknown]
  - Renal failure [Unknown]
  - Drug intolerance [Unknown]
  - Respiratory failure [Unknown]
  - Bone marrow failure [Unknown]
